FAERS Safety Report 8036889-7 (Version None)
Quarter: 2012Q1

REPORT INFORMATION
  Report Type: 
  Country: None (occurrence: None)
  Receive Date: 20120111
  Receipt Date: 20120109
  Transmission Date: 20120608
  Serious: Yes (Other)
  Sender: FDA-Public Use
  Company Number: US-PFIZER INC-2010006381

PATIENT
  Sex: Female

DRUGS (3)
  1. LYRICA [Concomitant]
     Dosage: UNK
     Dates: start: 20070901
  2. CHANTIX [Suspect]
     Indication: SMOKING CESSATION THERAPY
     Dosage: STARTER PACK
     Dates: start: 20080302, end: 20080328
  3. VICODIN [Concomitant]
     Indication: POST PROCEDURAL COMPLICATION
     Dosage: UNK
     Dates: start: 20080201, end: 20080701

REACTIONS (3)
  - ANXIETY [None]
  - SUICIDAL IDEATION [None]
  - DEPRESSION [None]
